FAERS Safety Report 9096098 (Version 2)
Quarter: 2013Q1

REPORT INFORMATION
  Report Type: Spontaneous
  Country: FR (occurrence: FR)
  Receive Date: 20130207
  Receipt Date: 20130211
  Transmission Date: 20140127
  Serious: Yes (Other)
  Sender: FDA-Public Use
  Company Number: FR-PFIZER INC-2013046941

PATIENT
  Age: 47 Year
  Sex: Female

DRUGS (10)
  1. LYRICA [Suspect]
     Indication: PAIN
     Dosage: 25 MG, 4X/DAY
  2. LYRICA [Suspect]
     Dosage: 150 MG, 2X/DAY
     Dates: end: 201209
  3. LEXOMIL [Concomitant]
     Dosage: UNK
  4. PAROXETINE [Concomitant]
     Dosage: UNK
  5. FORLAX [Concomitant]
     Dosage: UNK
  6. LACTIBIANE [Concomitant]
     Dosage: UNK
  7. DUSPATALIN ^DUPHAR^ [Concomitant]
     Dosage: UNK
  8. CARBOLEVURE [Concomitant]
     Dosage: UNK
  9. IBUPROFEN [Concomitant]
     Dosage: UNK
  10. PARACETAMOL [Concomitant]
     Dosage: UNK

REACTIONS (2)
  - Suicidal ideation [Recovered/Resolved]
  - Aggression [Recovered/Resolved]
